FAERS Safety Report 7592014-8 (Version None)
Quarter: 2011Q2

REPORT INFORMATION
  Report Type: 
  Country: None (occurrence: None)
  Receive Date: 20110606
  Receipt Date: 20101101
  Transmission Date: 20111010
  Serious: Yes (Disabling)
  Sender: FDA-Public Use
  Company Number: US-SEPTODONT-201000208

PATIENT
  Age: 52 Year
  Sex: Female

DRUGS (2)
  1. BENZOCAINE TOPICAL ANESTHETIC (BENZOCAINE) [Concomitant]
  2. SEPTOCAINE [Suspect]
     Indication: LOCAL ANAESTHESIA
     Dosage: DENTAL
     Route: 004
     Dates: start: 20100728

REACTIONS (1)
  - PARAESTHESIA [None]
